FAERS Safety Report 8480626-9 (Version None)
Quarter: 2012Q3

REPORT INFORMATION
  Report Type: 
  Country: None (occurrence: None)
  Receive Date: 20120702
  Receipt Date: 20120625
  Transmission Date: 20120928
  Serious: No
  Sender: FDA-Public Use
  Company Number: US-BIOGENIDEC-2012BI022851

PATIENT
  Age: 50 Year
  Sex: Female

DRUGS (3)
  1. AVONEX [Suspect]
     Indication: MULTIPLE SCLEROSIS
     Route: 030
     Dates: start: 20020101, end: 20110530
  2. AVONEX [Suspect]
     Route: 030
     Dates: start: 20120610
  3. AVONEX [Suspect]
     Route: 030
     Dates: start: 20120519, end: 20120602

REACTIONS (3)
  - INJECTION SITE REACTION [None]
  - SKIN DISCOLOURATION [None]
  - PAIN IN EXTREMITY [None]
